FAERS Safety Report 6260757-4 (Version None)
Quarter: 2009Q3

REPORT INFORMATION
  Report Type: 
  Country: None (occurrence: None)
  Receive Date: 20090708
  Receipt Date: 20090701
  Transmission Date: 20100115
  Serious: Yes (Hospitalization)
  Sender: FDA-Public Use
  Company Number: GB-AMGEN-US225060

PATIENT
  Sex: Female
  Weight: 90 kg

DRUGS (11)
  1. ENBREL [Suspect]
     Indication: RHEUMATOID ARTHRITIS
     Route: 058
     Dates: start: 20050816
  2. LEFLUNOMIDE [Concomitant]
     Route: 048
  3. OMEPRAZOLE [Concomitant]
  4. ASPIRIN [Concomitant]
  5. PREDNISOLONE [Concomitant]
  6. FUROSEMIDE [Concomitant]
     Dosage: UNKNOWN
  7. ATENOLOL [Concomitant]
     Dosage: UNKNOWN
  8. CITALOPRAM HYDROBROMIDE [Concomitant]
  9. MST [Concomitant]
  10. TIOTROPIUM BROMIDE [Concomitant]
  11. FERROUS SULFATE TAB [Concomitant]
     Dosage: UNKNOWN

REACTIONS (4)
  - ABSCESS [None]
  - ATRIAL FIBRILLATION [None]
  - LUNG NEOPLASM MALIGNANT [None]
  - STAPHYLOCOCCAL INFECTION [None]
